FAERS Safety Report 12211320 (Version 1)
Quarter: 2016Q1

REPORT INFORMATION
  Report Type: Spontaneous
  Country: PR (occurrence: PR)
  Receive Date: 20160325
  Receipt Date: 20160325
  Transmission Date: 20160526
  Serious: No
  Sender: FDA-Public Use
  Company Number: PR-PFIZER INC-2016142093

PATIENT
  Sex: Male

DRUGS (1)
  1. QUILLIVANT XR [Suspect]
     Active Substance: METHYLPHENIDATE HYDROCHLORIDE
     Dosage: UNK
     Dates: start: 201511, end: 201602

REACTIONS (1)
  - Activities of daily living impaired [Unknown]
